FAERS Safety Report 22284433 (Version 1)
Quarter: 2023Q2

REPORT INFORMATION
  Report Type: Spontaneous
  Country: US (occurrence: None)
  Receive Date: 20230503
  Receipt Date: 20230503
  Transmission Date: 20230721
  Serious: Yes (Other)
  Sender: FDA-Public Use
  Company Number: None

PATIENT
  Sex: 0

DRUGS (15)
  1. ATORVASTATIN [Suspect]
     Active Substance: ATORVASTATIN
     Indication: Blood cholesterol increased
     Dosage: OTHER QUANTITY : 1 TABLET(S);?FREQUENCY : AT BEDTIME;?
     Route: 048
     Dates: start: 20221210, end: 20221224
  2. PROGESTERONE [Concomitant]
     Active Substance: PROGESTERONE
  3. ESTRADIOL TRANSDERMAL SYSTEM [Concomitant]
     Active Substance: ESTRADIOL
  4. MELOXICAM [Concomitant]
     Active Substance: MELOXICAM
  5. PANTOPRAZOLE [Concomitant]
     Active Substance: PANTOPRAZOLE
  6. DULERA [Concomitant]
     Active Substance: FORMOTEROL FUMARATE DIHYDRATE\MOMETASONE FUROATE
  7. DICLOFENAC [Concomitant]
     Active Substance: DICLOFENAC
  8. VITAMIN E [Concomitant]
     Active Substance: .ALPHA.-TOCOPHEROL
  9. VITAMIN B12 [Concomitant]
     Active Substance: CYANOCOBALAMIN
  10. VITAMIN D3 [Concomitant]
     Active Substance: CHOLECALCIFEROL
  11. FISH OIL [Concomitant]
     Active Substance: FISH OIL
  12. CHROMIUM [Concomitant]
     Active Substance: CHROMIC CHLORIDE\CHROMIUM
  13. ZINC [Concomitant]
     Active Substance: ZINC
  14. BENADRYL [Concomitant]
     Active Substance: DIPHENHYDRAMINE HYDROCHLORIDE
  15. PLANT STEROLS [Concomitant]

REACTIONS (5)
  - Burning sensation [None]
  - Erythema [None]
  - Pain [None]
  - Hypoaesthesia [None]
  - Arthralgia [None]

NARRATIVE: CASE EVENT DATE: 20221224
